FAERS Safety Report 14479614 (Version 2)
Quarter: 2018Q4

REPORT INFORMATION
  Report Type: Report from Study
  Country: DE (occurrence: DE)
  Receive Date: 20180202
  Receipt Date: 20181101
  Transmission Date: 20190204
  Serious: Yes (Death, Hospitalization)
  Sender: FDA-Public Use
  Company Number: DE-ACTELION-A-CH2016-146596

PATIENT
  Age: 75 Year
  Sex: Male

DRUGS (16)
  1. ALLOPURINOL. [Concomitant]
     Active Substance: ALLOPURINOL
     Dosage: 100 MG, QD
     Dates: end: 20180111
  2. SOLUDECADRON [Concomitant]
     Active Substance: DEXAMETHASONE SODIUM PHOSPHATE
     Dosage: 250 MG, UNK
     Dates: start: 20180108
  3. MARCOUMAR [Concomitant]
     Active Substance: PHENPROCOUMON
     Dosage: UNK
     Dates: end: 20180110
  4. TAVEGIL [Concomitant]
     Active Substance: CLEMASTINE FUMARATE
     Dosage: UNK
     Dates: start: 20180108, end: 20180109
  5. UPTRAVI [Suspect]
     Active Substance: SELEXIPAG
     Indication: PULMONARY ARTERIAL HYPERTENSION
     Dosage: 1000 ?G, BID
     Route: 048
     Dates: start: 20161130
  6. TAMSULOSIN [Concomitant]
     Active Substance: TAMSULOSIN
     Dosage: 0.4 UNK, QD
     Dates: end: 20180111
  7. PENICILLIN [Concomitant]
     Active Substance: PENICILLIN
     Dosage: UNK, TID
     Dates: start: 20180103, end: 20180109
  8. KONAKION [Concomitant]
     Active Substance: PHYTONADIONE
     Dosage: 20 DROP, QD
     Dates: start: 20180108, end: 20180110
  9. SOLUDECADRON [Concomitant]
     Active Substance: DEXAMETHASONE SODIUM PHOSPHATE
     Dosage: 150 MG, UNK
     Dates: end: 20180111
  10. UPTRAVI [Suspect]
     Active Substance: SELEXIPAG
     Dosage: 1600 ?G, BID
     Route: 048
     Dates: start: 20170104, end: 20180111
  11. KALIUM [Concomitant]
     Active Substance: POTASSIUM CHLORIDE
     Dosage: 1 DF, QD
     Dates: start: 20180104, end: 20180105
  12. TORASEMIDE [Concomitant]
     Active Substance: TORSEMIDE
     Dosage: 10 UNK, QD
     Dates: start: 20180111
  13. VOLIBRIS [Concomitant]
     Active Substance: AMBRISENTAN
     Indication: PULMONARY ARTERIAL HYPERTENSION
     Dosage: 10 UNK, QD
     Route: 048
     Dates: end: 20180111
  14. ADCIRCA [Concomitant]
     Active Substance: TADALAFIL
     Indication: PULMONARY ARTERIAL HYPERTENSION
     Dosage: UNK
     Route: 048
     Dates: end: 20180111
  15. FUROSEMIDE. [Concomitant]
     Active Substance: FUROSEMIDE
     Dosage: 80 MG, TID
     Dates: start: 20180105, end: 20180109
  16. BISOPROLOL [Concomitant]
     Active Substance: BISOPROLOL
     Dosage: 25.5 UNK, BID
     Dates: end: 20180111

REACTIONS (7)
  - Renal failure [Unknown]
  - Syncope [Unknown]
  - Pain in jaw [Unknown]
  - Pruritus generalised [Unknown]
  - Cardiac failure [Fatal]
  - Hot flush [Unknown]
  - Blood pressure decreased [Unknown]

NARRATIVE: CASE EVENT DATE: 20161203
